FAERS Safety Report 13124517 (Version 1)
Quarter: 2017Q1

REPORT INFORMATION
  Report Type: Spontaneous
  Country: US (occurrence: US)
  Receive Date: 20170118
  Receipt Date: 20170118
  Transmission Date: 20170428
  Serious: No
  Sender: FDA-Public Use
  Company Number: US-PFIZER INC-2017018048

PATIENT
  Age: 69 Year
  Sex: Male
  Weight: 69.4 kg

DRUGS (2)
  1. DOCETAXEL. [Suspect]
     Active Substance: DOCETAXEL
     Dosage: 75 MG/M2, CYCLIC (21 DAYS X 3 CYCLES)
     Route: 042
     Dates: start: 20130311, end: 20130422
  2. CYTOXAN [Suspect]
     Active Substance: CYCLOPHOSPHAMIDE
     Dosage: 600 MG/M2, CYCLIC (21 DAYS X 3 CYCLES)
     Route: 042
     Dates: start: 20130311, end: 20130422

REACTIONS (1)
  - Neoplasm progression [Unknown]
